FAERS Safety Report 8586687-0 (Version None)
Quarter: 2012Q3

REPORT INFORMATION
  Report Type: 
  Country: None (occurrence: None)
  Receive Date: 20120810
  Receipt Date: 20120801
  Transmission Date: 20120928
  Serious: Yes (Other)
  Sender: FDA-Public Use
  Company Number: PHHY2012NO068106

PATIENT
  Sex: Female

DRUGS (7)
  1. CYCLOSPORINE [Suspect]
     Indication: LEUKOCYTOCLASTIC VASCULITIS
  2. RITUXIMAB [Suspect]
     Indication: CRYOGLOBULINAEMIA
     Dosage: 1000 MG, ONCE/SINGLE
     Dates: start: 20100301
  3. PREDNISOLONE [Concomitant]
     Dosage: 3.75 MG, DAILY
  4. METHOTREXATE SODIUM [Suspect]
     Indication: LEUKOCYTOCLASTIC VASCULITIS
  5. METHOTREXATE SODIUM [Suspect]
     Indication: CRYOGLOBULINAEMIA
  6. AZATHIOPRINE SODIUM [Suspect]
     Indication: LEUKOCYTOCLASTIC VASCULITIS
  7. RITUXIMAB [Suspect]
     Dosage: 1000 MG, ONCE/SINGLE
     Dates: start: 20100301

REACTIONS (1)
  - NEUTROPENIA [None]
